FAERS Safety Report 4862131-1 (Version None)
Quarter: 2005Q4

REPORT INFORMATION
  Report Type: 
  Country: None (occurrence: None)
  Receive Date: 20051221
  Receipt Date: 20051209
  Transmission Date: 20060501
  Serious: Yes (Other)
  Sender: FDA-Public Use
  Company Number: CA-BRISTOL-MYERS SQUIBB COMPANY-13219217

PATIENT
  Age: 58 Year
  Sex: Female

DRUGS (19)
  1. GATIFLOXACIN [Suspect]
     Route: 048
  2. AMLODIPINE [Concomitant]
     Route: 048
  3. ASPIRIN [Concomitant]
     Route: 048
  4. COMBIVENT [Concomitant]
     Route: 055
  5. DIGOXIN [Concomitant]
     Route: 048
  6. DILTIAZEM HCL [Concomitant]
     Route: 048
  7. GRAVOL TAB [Concomitant]
     Route: 042
  8. LASIX [Concomitant]
     Route: 042
  9. MAXERAN [Concomitant]
     Route: 042
  10. METOPROLOL [Concomitant]
     Route: 048
  11. MORPHINE [Concomitant]
     Route: 042
  12. NITROGLYCERIN [Concomitant]
  13. PROCHLORPERAZINE [Concomitant]
     Route: 042
  14. RAMIPRIL [Concomitant]
     Route: 048
  15. SENNA [Concomitant]
     Route: 048
  16. SYNTHROID [Concomitant]
     Route: 048
  17. TEQUIN [Concomitant]
  18. TYLENOL [Concomitant]
     Route: 048
  19. TYLENOL W/ CODEINE NO. 3 [Concomitant]
     Route: 048

REACTIONS (1)
  - HYPERGLYCAEMIA [None]
